FAERS Safety Report 11834117 (Version 1)
Quarter: 2015Q4

REPORT INFORMATION
  Report Type: Spontaneous
  Country: US (occurrence: US)
  Receive Date: 20151214
  Receipt Date: 20151214
  Transmission Date: 20160305
  Serious: No
  Sender: FDA-Public Use
  Company Number: PHEH2015US025835

PATIENT
  Age: 40 Year
  Sex: Female
  Weight: 49.89 kg

DRUGS (1)
  1. JADENU [Suspect]
     Active Substance: DEFERASIROX
     Indication: IRON OVERLOAD
     Dosage: 90 MG, QD
     Route: 048
     Dates: start: 20151208, end: 20151208

REACTIONS (3)
  - Gastrointestinal disorder [Unknown]
  - Dizziness [Recovered/Resolved]
  - Loss of consciousness [Unknown]

NARRATIVE: CASE EVENT DATE: 20151208
